FAERS Safety Report 9936682 (Version 1)
Quarter: 2014Q1

REPORT INFORMATION
  Report Type: Spontaneous
  Country: US (occurrence: US)
  Receive Date: 20140228
  Receipt Date: 20140228
  Transmission Date: 20141002
  Serious: No
  Sender: FDA-Public Use
  Company Number: US-SA-2013SA102718

PATIENT
  Age: 65 Year
  Sex: Male

DRUGS (6)
  1. DIABETA [Suspect]
     Route: 065
  2. CRESTOR [Concomitant]
  3. ASPIRIN [Concomitant]
  4. BENICAR [Concomitant]
  5. METFORMIN [Concomitant]
  6. GLYBURIDE [Concomitant]

REACTIONS (2)
  - Rhinorrhoea [Unknown]
  - Nasal congestion [Unknown]
